FAERS Safety Report 10987129 (Version 2)
Quarter: 2015Q2

REPORT INFORMATION
  Report Type: Spontaneous
  Country: US (occurrence: US)
  Receive Date: 20150404
  Receipt Date: 20150525
  Transmission Date: 20150821
  Serious: No
  Sender: FDA-Public Use
  Company Number: US-JNJFOC-20140115367

PATIENT

DRUGS (1)
  1. INFLIXIMAB, RECOMBINANT [Suspect]
     Active Substance: INFLIXIMAB
     Indication: UVEITIS
     Route: 042

REACTIONS (6)
  - Product use issue [Unknown]
  - Liver function test abnormal [Unknown]
  - Fatigue [Unknown]
  - Infusion related reaction [Unknown]
  - Infection [Unknown]
  - Rash [Unknown]
